FAERS Safety Report 5707310-6 (Version None)
Quarter: 2008Q2

REPORT INFORMATION
  Report Type: 
  Country: None (occurrence: None)
  Receive Date: 20080416
  Receipt Date: 20080409
  Transmission Date: 20081010
  Serious: Yes (Other)
  Sender: FDA-Public Use
  Company Number: US-WYE-H03528408

PATIENT
  Sex: Female
  Weight: 71.73 kg

DRUGS (8)
  1. PREMPHASE 14/14 [Suspect]
     Indication: HOT FLUSH
     Route: 048
     Dates: start: 19970710, end: 19990908
  2. VITAMIN B [Concomitant]
     Dosage: UNKNOWN
     Route: 065
  3. CALCIUM [Concomitant]
     Dosage: 600 MG; 2 TABLETS
     Route: 065
  4. VITAMIN E [Concomitant]
     Dosage: 400 IU; UNSPECIFED FREQUENCY
     Route: 065
  5. ASCORBIC ACID [Concomitant]
     Dosage: 600 MG; UNKNOWN FREQUENCY
     Route: 065
  6. VITAMIN D [Concomitant]
     Dosage: 600MG; 2 TABLETS
     Route: 065
  7. PREMPRO [Suspect]
     Route: 048
     Dates: start: 19990908, end: 20000928
  8. GLUCOSAMINE W/CHONDROITIN SULFATES [Concomitant]
     Dosage: UNKNOWN
     Route: 065

REACTIONS (1)
  - BREAST CANCER METASTATIC [None]
